FAERS Safety Report 6155963-3 (Version None)
Quarter: 2009Q2

REPORT INFORMATION
  Report Type: 
  Country: None (occurrence: None)
  Receive Date: 20090415
  Receipt Date: 20090409
  Transmission Date: 20091009
  Serious: Yes (Death, Hospitalization, Disabling, Other)
  Sender: FDA-Public Use
  Company Number: US-ROCHE-549826

PATIENT
  Sex: Female
  Weight: 43 kg

DRUGS (5)
  1. TAMIFLU [Suspect]
     Route: 048
     Dates: start: 20080220, end: 20080224
  2. TYGACIL [Suspect]
     Indication: SEPSIS
     Dosage: LOADING DOSE
     Route: 042
     Dates: start: 20080219
  3. TYGACIL [Suspect]
     Dosage: OTHER INDICATION: PNEUMONIA
     Route: 042
     Dates: end: 20080225
  4. METHYLPREDNISOLONE 4MG TAB [Concomitant]
  5. INFLIXIMAB [Concomitant]

REACTIONS (8)
  - CARDIO-RESPIRATORY ARREST [None]
  - DISSEMINATED INTRAVASCULAR COAGULATION [None]
  - ENCEPHALOPATHY [None]
  - PANCREATITIS [None]
  - PNEUMONIA INFLUENZAL [None]
  - RENAL FAILURE [None]
  - RESPIRATORY FAILURE [None]
  - SEPSIS [None]
